FAERS Safety Report 24541383 (Version 1)
Quarter: 2024Q4

REPORT INFORMATION
  Report Type: Spontaneous
  Country: US (occurrence: US)
  Receive Date: 20241023
  Receipt Date: 20241023
  Transmission Date: 20250114
  Serious: No
  Sender: BRACCO
  Company Number: US-BRACCO-2023US04996

PATIENT
  Age: 43 Year
  Sex: Male

DRUGS (2)
  1. PROHANCE [Suspect]
     Active Substance: GADOTERIDOL
     Indication: Magnetic resonance imaging head
     Dosage: UNK
     Dates: start: 20230921, end: 20230921
  2. TAGRISSO [Concomitant]
     Active Substance: OSIMERTINIB

REACTIONS (2)
  - Muscle disorder [Unknown]
  - Skin discolouration [Unknown]

NARRATIVE: CASE EVENT DATE: 20230924
